FAERS Safety Report 6849746-6 (Version None)
Quarter: 2010Q3

REPORT INFORMATION
  Report Type: 
  Country: None (occurrence: None)
  Receive Date: 20100716
  Receipt Date: 20071011
  Transmission Date: 20110219
  Serious: No
  Sender: FDA-Public Use
  Company Number: US-PFIZER INC-2007083855

PATIENT
  Sex: Male
  Weight: 68.2 kg

DRUGS (7)
  1. CHANTIX [Suspect]
     Indication: SMOKING CESSATION THERAPY
     Dates: start: 20070924
  2. LISINOPRIL [Concomitant]
     Indication: HYPERTENSION
  3. SIMVASTATIN [Concomitant]
     Indication: BLOOD CHOLESTEROL INCREASED
  4. PLAVIX [Concomitant]
  5. LORAZEPAM [Concomitant]
     Indication: ANXIETY
  6. VITAMINS [Concomitant]
  7. GABAPENTIN [Concomitant]
     Indication: RESTLESS LEGS SYNDROME

REACTIONS (2)
  - DIZZINESS [None]
  - NAUSEA [None]
